FAERS Safety Report 10038261 (Version 1)
Quarter: 2014Q1

REPORT INFORMATION
  Report Type: Spontaneous
  Country: US (occurrence: None)
  Receive Date: 20140306
  Receipt Date: 20140306
  Transmission Date: 20141002
  Serious: Yes (Other)
  Sender: FDA-Public Use
  Company Number: 163-21880-13054449

PATIENT
  Age: 87 Year
  Sex: Male

DRUGS (9)
  1. REVLIMID(LENALIDOMIDE)(10 MILLIGRAM, CAPSULES) [Suspect]
     Indication: PLASMA CELL MYELOMA
     Route: 048
     Dates: start: 20130522, end: 20130722
  2. DEXAMETHASONE [Suspect]
     Indication: PLASMA CELL MYELOMA
     Route: 048
     Dates: start: 20130614
  3. AMLODIPINE(AMLODIPINE) [Concomitant]
  4. SIMVASTATIN(SIMVASTATIN) [Concomitant]
  5. METOPROLOL [Concomitant]
  6. NEXIUM DR(ESOMEPRAZOLE MAGNESIUM)(CAPSULES) [Concomitant]
  7. PRADAXA(DABIGATRAN ETEXILATE MESILATE)(CAPSULES) [Concomitant]
  8. CALCIUM(CALCIUM0(UKNOWN) [Concomitant]
  9. FERROUS SULFATE (FERROUS SULFATE)(TABLETS) [Concomitant]

REACTIONS (1)
  - Hiccups [None]
